FAERS Safety Report 13162627 (Version 1)
Quarter: 2017Q1

REPORT INFORMATION
  Report Type: Spontaneous
  Country: US (occurrence: US)
  Receive Date: 20170128
  Receipt Date: 20170128
  Transmission Date: 20170428
  Serious: Yes (Hospitalization)
  Sender: FDA-Public Use
  Company Number: None

PATIENT
  Age: 38 Year
  Sex: Female
  Weight: 70.2 kg

DRUGS (2)
  1. LORATADINE. [Concomitant]
     Active Substance: LORATADINE
  2. MIFEPRISTONE [Suspect]
     Active Substance: MIFEPRISTONE
     Indication: ABORTION
     Dosage: ?          QUANTITY:1 TABLET(S);?
     Route: 048
     Dates: start: 20170107, end: 20170107

REACTIONS (8)
  - Feeling abnormal [None]
  - Fatigue [None]
  - Dizziness [None]
  - Altered state of consciousness [None]
  - Transient ischaemic attack [None]
  - Movement disorder [None]
  - Hypersomnia [None]
  - Muscular weakness [None]

NARRATIVE: CASE EVENT DATE: 20170108
